FAERS Safety Report 6721443-7 (Version None)
Quarter: 2010Q2

REPORT INFORMATION
  Report Type: 
  Country: None (occurrence: None)
  Receive Date: 20100512
  Receipt Date: 20100429
  Transmission Date: 20101027
  Serious: Yes (Death)
  Sender: FDA-Public Use
  Company Number: US-CELGENEUS-163-20785-10050757

PATIENT

DRUGS (7)
  1. THALOMID [Suspect]
     Indication: PROSTATE CANCER
     Route: 048
  2. BEVACIZUMAB [Suspect]
     Indication: PROSTATE CANCER
     Route: 051
  3. DOCETAXEL [Suspect]
     Indication: PROSTATE CANCER
     Route: 051
  4. PREDNISONE [Suspect]
     Indication: PROSTATE CANCER
     Route: 048
  5. ENOXAPARIN SODIUM [Concomitant]
     Indication: THROMBOSIS PROPHYLAXIS
     Route: 058
  6. PEGFILGRASTIM [Concomitant]
     Indication: DRUG USE FOR UNKNOWN INDICATION
     Route: 065
  7. ZOLEDRONIC ACID [Concomitant]
     Indication: DRUG USE FOR UNKNOWN INDICATION
     Route: 065

REACTIONS (2)
  - AORTIC DISSECTION [None]
  - MYOCARDIAL INFARCTION [None]
